FAERS Safety Report 7048232-0 (Version None)
Quarter: 2010Q4

REPORT INFORMATION
  Report Type: 
  Country: None (occurrence: None)
  Receive Date: 20101014
  Receipt Date: 20101014
  Transmission Date: 20110411
  Serious: Yes (Other)
  Sender: FDA-Public Use
  Company Number: None

PATIENT
  Age: 28 Year
  Sex: Female
  Weight: 115.2136 kg

DRUGS (1)
  1. NUVARING [Suspect]
     Indication: CONTRACEPTION
     Dosage: 1 RING VAGINAL EVERY 3 WKS MONTHLY VAG
     Route: 067
     Dates: start: 20060214, end: 20101013

REACTIONS (11)
  - ASTHENIA [None]
  - DEPRESSION [None]
  - FATIGUE [None]
  - HYPERSOMNIA [None]
  - INSOMNIA [None]
  - LIBIDO DECREASED [None]
  - MIGRAINE [None]
  - MOOD SWINGS [None]
  - SUICIDAL IDEATION [None]
  - THYROID DISORDER [None]
  - TREATMENT NONCOMPLIANCE [None]
